FAERS Safety Report 8508443-1 (Version None)
Quarter: 2012Q3

REPORT INFORMATION
  Report Type: 
  Country: None (occurrence: None)
  Receive Date: 20120713
  Receipt Date: 20120709
  Transmission Date: 20120928
  Serious: Yes (Other)
  Sender: FDA-Public Use
  Company Number: US-BAYER-2012-065516

PATIENT
  Age: 34 Year
  Sex: Female

DRUGS (1)
  1. MIRENA [Suspect]
     Indication: CONTRACEPTION
     Dosage: 20 MCG/24HR, CONT
     Route: 015
     Dates: start: 20120101

REACTIONS (15)
  - DEVICE DISLOCATION [None]
  - DYSPAREUNIA [None]
  - CHILLS [None]
  - SWELLING [None]
  - ABDOMINAL PAIN UPPER [None]
  - SINUSITIS [None]
  - PHARYNGITIS STREPTOCOCCAL [None]
  - TYMPANIC MEMBRANE PERFORATION [None]
  - DEVICE DIFFICULT TO USE [None]
  - MALAISE [None]
  - TOOTHACHE [None]
  - ABDOMINAL PAIN LOWER [None]
  - VAGINAL INFECTION [None]
  - HYPERHIDROSIS [None]
  - EAR INFECTION [None]
